FAERS Safety Report 25639458 (Version 1)
Quarter: 2025Q3

REPORT INFORMATION
  Report Type: Report from Study
  Country: US (occurrence: US)
  Receive Date: 20250804
  Receipt Date: 20250804
  Transmission Date: 20251020
  Serious: No
  Sender: AURINIA PHARMACEUTICALS
  Company Number: US-AURINIA PHARMACEUTICALS INC.-AUR-007936

PATIENT
  Sex: Male

DRUGS (2)
  1. LUPKYNIS [Suspect]
     Active Substance: VOCLOSPORIN
     Indication: Lupus nephritis
     Dosage: 23.7 MILLIGRAM, BID
     Route: 048
     Dates: start: 20240829
  2. KINERET [Concomitant]
     Active Substance: ANAKINRA
     Indication: Juvenile idiopathic arthritis
     Dosage: 100 MILLIGRAM, QOD
     Route: 058
     Dates: start: 20240312

REACTIONS (5)
  - Urine abnormality [Not Recovered/Not Resolved]
  - Papillary cystadenoma lymphomatosum [Unknown]
  - Tumour pain [Unknown]
  - Headache [Unknown]
  - Blood pressure increased [Unknown]
